FAERS Safety Report 6337894-9 (Version None)
Quarter: 2009Q3

REPORT INFORMATION
  Report Type: 
  Country: None (occurrence: None)
  Receive Date: 20090902
  Receipt Date: 20090824
  Transmission Date: 20100115
  Serious: Yes (Hospitalization)
  Sender: FDA-Public Use
  Company Number: US-ABBOTT-09P-163-0593242-00

PATIENT
  Sex: Female

DRUGS (11)
  1. SYNTHROID [Suspect]
     Indication: HYPOTHYROIDISM
     Dates: start: 19690101
  2. SYNTHROID [Suspect]
  3. LEVOTHYROXINE [Suspect]
     Indication: DRUG USE FOR UNKNOWN INDICATION
  4. LASIX [Concomitant]
     Indication: DRUG USE FOR UNKNOWN INDICATION
     Dates: start: 20090601
  5. GABAPENTIN [Concomitant]
     Indication: DRUG USE FOR UNKNOWN INDICATION
     Dates: start: 20090601
  6. OXYCODONE [Concomitant]
     Indication: PAIN
     Dosage: 5-325MG
     Dates: start: 20090601
  7. KLOR-CON [Concomitant]
     Indication: MINERAL SUPPLEMENTATION
  8. ALPRAZOLAM [Concomitant]
     Indication: ANXIETY
     Dosage: 1/2 TABLET UP THE THREE TIMES DAILY
  9. ASPIRIN [Concomitant]
     Indication: DRUG USE FOR UNKNOWN INDICATION
  10. PANTOPRAZOLE SODIUM [Concomitant]
     Indication: GASTROOESOPHAGEAL REFLUX DISEASE
  11. CYTALOPRAM [Concomitant]
     Indication: DRUG USE FOR UNKNOWN INDICATION

REACTIONS (5)
  - BACK PAIN [None]
  - CARDIAC ARREST [None]
  - CHEST PAIN [None]
  - MALAISE [None]
  - MYOCARDIAL INFARCTION [None]
